FAERS Safety Report 17550203 (Version 1)
Quarter: 2020Q1

REPORT INFORMATION
  Report Type: Spontaneous
  Country: US (occurrence: US)
  Receive Date: 20200317
  Receipt Date: 20200317
  Transmission Date: 20200409
  Serious: No
  Sender: FDA-Public Use
  Company Number: US-PFIZER INC-2020114415

PATIENT
  Age: 54 Year
  Sex: Female

DRUGS (1)
  1. PRISTIQ EXTENDED-RELEASE [Suspect]
     Active Substance: DESVENLAFAXINE SUCCINATE
     Dosage: UNK

REACTIONS (8)
  - Insomnia [Unknown]
  - Rash papular [Unknown]
  - Irritability [Unknown]
  - Alopecia [Unknown]
  - Eyelid ptosis [Unknown]
  - Morbid thoughts [Unknown]
  - Tremor [Unknown]
  - Nausea [Unknown]
